FAERS Safety Report 9057229 (Version 1)
Quarter: 2013Q1

REPORT INFORMATION
  Report Type: Spontaneous
  Country: US (occurrence: US)
  Receive Date: 20130131
  Receipt Date: 20130131
  Transmission Date: 20140127
  Serious: Yes (Death)
  Sender: FDA-Public Use
  Company Number: US-GLAXOSMITHKLINE-A1009777A

PATIENT
  Age: 83 Year
  Sex: Male

DRUGS (7)
  1. PROMACTA [Suspect]
     Indication: IDIOPATHIC THROMBOCYTOPENIC PURPURA
     Dosage: 3TAB PER DAY
     Route: 048
     Dates: start: 20100108
  2. HUMALOG [Concomitant]
  3. ISOSORBIDE [Concomitant]
  4. LANTUS [Concomitant]
  5. LEXAPRO [Concomitant]
  6. PYRIDOSTIGMINE [Concomitant]
  7. TYLENOL WITH CODEINE [Concomitant]

REACTIONS (3)
  - Death [Fatal]
  - Myocardial infarction [Unknown]
  - Fall [Unknown]
